FAERS Safety Report 25144446 (Version 1)
Quarter: 2025Q2

REPORT INFORMATION
  Report Type: Spontaneous
  Country: US (occurrence: US)
  Receive Date: 20250401
  Receipt Date: 20250401
  Transmission Date: 20250717
  Serious: Yes (Hospitalization, Other)
  Sender: VERICEL
  Company Number: US-VERICEL-US-VCEL-25-000083

PATIENT
  Sex: Female

DRUGS (1)
  1. MACI [Suspect]
     Active Substance: AUTOLOGOUS CULTURED CHONDROCYTES\SUS SCROFA COLLAGEN
     Indication: Cartilage injury
     Route: 050
     Dates: start: 20250218, end: 20250218

REACTIONS (1)
  - Compartment syndrome [Unknown]
